FAERS Safety Report 8990374 (Version 1)
Quarter: 2012Q4

REPORT INFORMATION
  Report Type: 
  Country: GB (occurrence: GB)
  Receive Date: 20121228
  Receipt Date: 20121228
  Transmission Date: 20130627
  Serious: Yes (Death, Other)
  Sender: FDA-Public Use
  Company Number: GB-TEVA-377121ISR

PATIENT
  Sex: Male
  Weight: 118 kg

DRUGS (14)
  1. AMITRIPTYLINE [Suspect]
  2. AMLODIPINE [Concomitant]
  3. LOSARTAN AND HYDROCHLOROTHIAZIDE [Concomitant]
  4. DIAZEPAM [Concomitant]
  5. PREDNISOLONE [Concomitant]
  6. BETAHISTINE [Concomitant]
  7. CIPROFLOXACIN [Concomitant]
  8. BEZAFIBRATE [Concomitant]
  9. RABEPRAZOLE [Concomitant]
  10. BENZYDAMINE [Concomitant]
  11. GABAPENTIN [Concomitant]
  12. CARBAMAZEPINE [Concomitant]
  13. PROPRANOLOL [Concomitant]
  14. CO-CODAMOL [Concomitant]

REACTIONS (2)
  - Sudden death [Fatal]
  - Drug level increased [Not Recovered/Not Resolved]
